FAERS Safety Report 9831068 (Version 4)
Quarter: 2014Q1

REPORT INFORMATION
  Report Type: Report from Study
  Country: US (occurrence: US)
  Receive Date: 20140120
  Receipt Date: 20140228
  Transmission Date: 20141002
  Serious: Yes (Hospitalization)
  Sender: FDA-Public Use
  Company Number: US-BRISTOL-MYERS SQUIBB COMPANY-19694884

PATIENT
  Age: 63 Year
  Sex: Male
  Weight: 89.8 kg

DRUGS (14)
  1. BELATACEPT [Suspect]
     Indication: RENAL TRANSPLANT
     Dosage: 04OCT2013 1000 MG PER MO LOT 2A71600?LAST DOSE ON 4OCT13
     Route: 042
     Dates: start: 20130905, end: 20131004
  2. TACROLIMUS [Suspect]
     Indication: RENAL TRANSPLANT
     Dosage: INTER ON 6SEP13-14OCT13?RESTRTD ON 15OCT13 3 MG DAILY?24OCT13 10 MG BID?1-JAN-2014: 3 MG BID
     Route: 048
     Dates: start: 20131024
  3. THYMOGLOBULINE [Suspect]
     Indication: RENAL TRANSPLANT
     Dates: start: 20130610, end: 20130613
  4. CELLCEPT [Suspect]
     Indication: RENAL TRANSPLANT
     Dosage: 750MG-BID-ALSO TAKEN AS CONMED
     Dates: end: 20131129
  5. HUMALOG [Concomitant]
  6. LANTUS [Concomitant]
  7. LIPITOR [Concomitant]
  8. NORVASC [Concomitant]
  9. VALGANCICLOVIR [Concomitant]
  10. FLORINEF [Concomitant]
  11. ATIVAN [Concomitant]
  12. LABETALOL [Concomitant]
  13. LOPRESSOR [Concomitant]
  14. IMURAN [Concomitant]

REACTIONS (8)
  - Clostridium difficile infection [Recovered/Resolved]
  - Ureteric obstruction [Unknown]
  - Kidney transplant rejection [Unknown]
  - Mental status changes [Recovered/Resolved]
  - Hyperkalaemia [Recovered/Resolved]
  - Urosepsis [Recovered/Resolved]
  - Urinary tract infection [Recovered/Resolved]
  - Pyrexia [Unknown]
